FAERS Safety Report 5615325-1 (Version None)
Quarter: 2008Q1

REPORT INFORMATION
  Report Type: 
  Country: None (occurrence: None)
  Receive Date: 20080201
  Receipt Date: 20080123
  Transmission Date: 20080703
  Serious: Yes (Other)
  Sender: FDA-Public Use
  Company Number: 028-20785-07080963

PATIENT
  Age: 49 Year
  Sex: Female

DRUGS (4)
  1. THALOMID [Suspect]
     Indication: MULTIPLE MYELOMA
     Dosage: 100 MG, 2 IN 1 D, ORAL; 100 MG, 2 IN 1 D, ORAL
     Route: 048
     Dates: end: 20070801
  2. THALOMID [Suspect]
     Indication: MULTIPLE MYELOMA
     Dosage: 100 MG, 2 IN 1 D, ORAL; 100 MG, 2 IN 1 D, ORAL
     Route: 048
     Dates: start: 20070901
  3. THALOMID [Suspect]
  4. THALOMID [Suspect]

REACTIONS (1)
  - BLOOD HUMAN CHORIONIC GONADOTROPIN INCREASED [None]
